FAERS Safety Report 12336472 (Version 1)
Quarter: 2016Q2

REPORT INFORMATION
  Report Type: Not Available
  Country: GB (occurrence: GB)
  Receive Date: 20160505
  Receipt Date: 20160505
  Transmission Date: 20160815
  Serious: Yes (Hospitalization)
  Sender: FDA-Public Use
  Company Number: GB-PURDUE PHARMA-GBR-2016-0035808

PATIENT
  Age: 80 Year
  Sex: Female

DRUGS (13)
  1. RANOLAZINE [Concomitant]
     Active Substance: RANOLAZINE
     Dosage: 500 MG, UNK
  2. ASPIRIN. [Concomitant]
     Active Substance: ASPIRIN
     Dosage: 75 MG, UNK
  3. ISOSORBIDE MONONITRATE. [Concomitant]
     Active Substance: ISOSORBIDE MONONITRATE
     Dosage: 60 MG, UNK
  4. METFORMIN [Concomitant]
     Active Substance: METFORMIN HYDROCHLORIDE
     Dosage: 1 G, UNK
  5. BUPRENORPHINE TRANSDERMAL SYSTEM [Suspect]
     Active Substance: BUPRENORPHINE
     Indication: PAIN
     Dosage: 5 MCG, Q1H
     Route: 062
     Dates: start: 20160412
  6. HUMULIN NOS [Concomitant]
     Active Substance: INSULIN HUMAN
  7. BISOPROLOL [Concomitant]
     Active Substance: BISOPROLOL
     Dosage: 5 MG, UNK
  8. LACTULOSE. [Concomitant]
     Active Substance: LACTULOSE
  9. SIMVASTATIN. [Concomitant]
     Active Substance: SIMVASTATIN
     Dosage: 40 MG, UNK
  10. LANSOPRAZOLE. [Concomitant]
     Active Substance: LANSOPRAZOLE
     Dosage: 30 MG, UNK
  11. FLUDROCORTISONE [Concomitant]
     Active Substance: FLUDROCORTISONE
     Dosage: 100 MCG, UNK
  12. GLYCERYL TRINITRATE [Concomitant]
     Active Substance: NITROGLYCERIN
     Dosage: 5 MG, DAILY
     Route: 062
  13. AMLODIPINE [Concomitant]
     Active Substance: AMLODIPINE BESYLATE
     Dosage: 5 MG, UNK

REACTIONS (2)
  - Confusional state [Unknown]
  - Fall [Unknown]

NARRATIVE: CASE EVENT DATE: 20160412
